FAERS Safety Report 8510563 (Version 5)
Quarter: 2014Q1

REPORT INFORMATION
  Report Type: Report from Study
  Country: US (occurrence: US)
  Receive Date: 20120413
  Receipt Date: 20140212
  Transmission Date: 20141002
  Serious: Yes (Hospitalization, Other)
  Sender: FDA-Public Use
  Company Number: US-ALEXION-A201200607

PATIENT
  Age: 18 Year
  Sex: Male

DRUGS (9)
  1. SOLIRIS [Suspect]
     Indication: HAEMOLYTIC URAEMIC SYNDROME
     Dosage: 900 MG, QW
     Route: 042
     Dates: start: 20120317, end: 20120405
  2. SOLIRIS [Suspect]
     Dosage: 1200 MG, Q2W
     Route: 042
     Dates: start: 20120315
  3. TUMS [Concomitant]
     Dosage: UNK, QD
     Route: 048
  4. CLONIDINE [Concomitant]
     Dosage: 0.2 MG, TID
     Route: 048
  5. LORTAB [Concomitant]
     Dosage: 5/500 MG, Q 6 HRS, PRN
     Route: 048
  6. LABETALOL [Concomitant]
     Dosage: 200 MG, TID
     Route: 048
  7. PROCARDIA [Concomitant]
     Dosage: 60 MG, QID
     Route: 048
  8. MIRALAX [Concomitant]
     Indication: CONSTIPATION
     Dosage: 17 G, QD
     Route: 048
  9. SENNA [Concomitant]
     Dosage: UNK, QD
     Route: 048

REACTIONS (21)
  - Pulmonary oedema [Unknown]
  - Hypoxia [Unknown]
  - Dehydration [Not Recovered/Not Resolved]
  - Cardiac failure congestive [Not Recovered/Not Resolved]
  - Pneumonia [Not Recovered/Not Resolved]
  - Hypertension [Not Recovered/Not Resolved]
  - Transfusion [Unknown]
  - Depression suicidal [Unknown]
  - Haematemesis [Not Recovered/Not Resolved]
  - Heart rate increased [Unknown]
  - Groin pain [Unknown]
  - Left ventricular dysfunction [Not Recovered/Not Resolved]
  - Nausea [Not Recovered/Not Resolved]
  - Vomiting [Not Recovered/Not Resolved]
  - Back pain [Unknown]
  - Depressed mood [Unknown]
  - Fatigue [Unknown]
  - Diarrhoea [Unknown]
  - Asthenia [Unknown]
  - Anger [Unknown]
  - Swelling [Unknown]
